FAERS Safety Report 8221315-5 (Version None)
Quarter: 2012Q1

REPORT INFORMATION
  Report Type: 
  Country: None (occurrence: None)
  Receive Date: 20120313
  Receipt Date: 20120305
  Transmission Date: 20120608
  Serious: Yes (Other)
  Sender: FDA-Public Use
  Company Number: DSA_55317_2012

PATIENT
  Sex: Male

DRUGS (1)
  1. XENAZINE [Suspect]
     Indication: TIC
     Dosage: (12.5 MG TID ORAL)
     Route: 048
     Dates: start: 20100601

REACTIONS (6)
  - DYSKINESIA [None]
  - MUSCULOSKELETAL STIFFNESS [None]
  - CONVULSION [None]
  - TREMOR [None]
  - MYDRIASIS [None]
  - HYPERHIDROSIS [None]
